FAERS Safety Report 4298848-X (Version None)
Quarter: 2004Q1

REPORT INFORMATION
  Report Type: 
  Country: None (occurrence: None)
  Receive Date: 20040126
  Receipt Date: 20031022
  Transmission Date: 20041129
  Serious: No
  Sender: FDA-Public Use
  Company Number: USA031050619

PATIENT
  Age: 6 Year
  Sex: Male

DRUGS (2)
  1. STRATTERA [Suspect]
     Indication: ATTENTION DEFICIT/HYPERACTIVITY DISORDER
     Dates: end: 20031022
  2. REMERON [Concomitant]

REACTIONS (3)
  - MUSCLE CRAMP [None]
  - MUSCLE RIGIDITY [None]
  - POSTURE ABNORMAL [None]
